FAERS Safety Report 7131947-3 (Version None)
Quarter: 2010Q4

REPORT INFORMATION
  Report Type: 
  Country: None (occurrence: None)
  Receive Date: 20101202
  Receipt Date: 20101126
  Transmission Date: 20110411
  Serious: Yes (Other)
  Sender: FDA-Public Use
  Company Number: MX-B.I. PHARMACEUTICALS,INC./RIDGEFIELD-2010-MX-00188MX

PATIENT
  Sex: Male

DRUGS (6)
  1. DABIGATRAN ETEXILATE [Suspect]
     Indication: THROMBOSIS PROPHYLAXIS
     Dosage: 220 MG
     Route: 048
  2. PARACETAMOL [Concomitant]
     Indication: ANALGESIC THERAPY
     Dosage: 4 G
     Route: 048
  3. METAMIZOL [Concomitant]
     Indication: ANALGESIC THERAPY
     Dosage: 4 G
     Route: 042
  4. ZALDIAR [Concomitant]
     Indication: ANALGESIC THERAPY
     Dosage: 1 TABLET EVERY 6 HOURS
     Route: 048
  5. LEVOFLOXACIN [Concomitant]
     Indication: INFECTION PROPHYLAXIS
     Dosage: 750 MG
     Route: 042
  6. NEXIUM [Concomitant]
     Dosage: 40 MG
     Route: 048

REACTIONS (2)
  - HEPATITIS [None]
  - MALNUTRITION [None]
